FAERS Safety Report 23775120 (Version 2)
Quarter: 2025Q2

REPORT INFORMATION
  Report Type: Spontaneous
  Country: US (occurrence: US)
  Receive Date: 20240423
  Receipt Date: 20250428
  Transmission Date: 20250717
  Serious: Yes (Other)
  Sender: BRISTOL-MYERS SQUIBB COMPANY
  Company Number: US-BRISTOL-MYERS SQUIBB COMPANY-2024-063134

PATIENT
  Age: 68 Year
  Sex: Male

DRUGS (14)
  1. REVLIMID [Suspect]
     Active Substance: LENALIDOMIDE
     Indication: Plasma cell myeloma
     Route: 048
     Dates: end: 20221006
  2. REVLIMID [Suspect]
     Active Substance: LENALIDOMIDE
     Route: 048
  3. REVLIMID [Suspect]
     Active Substance: LENALIDOMIDE
     Route: 048
     Dates: end: 20240513
  4. CALCITONIN [Concomitant]
     Active Substance: CALCITONIN
     Indication: Product used for unknown indication
  5. ZOMETA [Concomitant]
     Active Substance: ZOLEDRONIC ACID
     Indication: Product used for unknown indication
  6. DEXAMETHASONE [Concomitant]
     Active Substance: DEXAMETHASONE
     Indication: Product used for unknown indication
  7. BORTEZOMIB [Concomitant]
     Active Substance: BORTEZOMIB
     Indication: Product used for unknown indication
  8. IXAZOMIB [Concomitant]
     Active Substance: IXAZOMIB
     Indication: Product used for unknown indication
     Dosage: 3 MG WEEKLY 3 W OUT OF 4
  9. ACYCLOVIR [Concomitant]
     Active Substance: ACYCLOVIR
     Indication: Product used for unknown indication
     Route: 048
  10. DULOXETINE [Concomitant]
     Active Substance: DULOXETINE
     Indication: Product used for unknown indication
     Dosage: CAPSULE DELAYED RELEASE(DR/EC) ORAL DAILY
     Route: 048
  11. KLOR-CON M20 [Concomitant]
     Active Substance: POTASSIUM CHLORIDE
     Indication: Product used for unknown indication
     Route: 048
  12. OMEPRAZOLE [Concomitant]
     Active Substance: OMEPRAZOLE
     Indication: Product used for unknown indication
     Dosage: OMEPRAZOLE ORAL DELAYED RELEASE CAPSULE 20 MG CAPSULE, DELAYED RELEASE(DR/EC) 1 CAPSULE,DELAYED RELE
     Route: 048
  13. HYDROCHLOROTHIAZIDE [Concomitant]
     Active Substance: HYDROCHLOROTHIAZIDE
     Indication: Product used for unknown indication
  14. FUROSEMIDE [Concomitant]
     Active Substance: FUROSEMIDE
     Indication: Product used for unknown indication
     Route: 048

REACTIONS (24)
  - Inappropriate schedule of product administration [Unknown]
  - Dizziness postural [Unknown]
  - Leukopenia [Unknown]
  - Anaemia [Unknown]
  - Amnesia [Recovering/Resolving]
  - Proteinuria [Unknown]
  - Oedema peripheral [Unknown]
  - Deep vein thrombosis [Unknown]
  - Hyperferritinaemia [Unknown]
  - Fatigue [Unknown]
  - Decreased appetite [Unknown]
  - Diarrhoea [Unknown]
  - Hypoaesthesia [Unknown]
  - Constipation [Unknown]
  - Oral pain [Unknown]
  - Insomnia [Unknown]
  - Depression [Unknown]
  - Amino acid level increased [Unknown]
  - Intervertebral disc disorder [Unknown]
  - Vertebral foraminal stenosis [Unknown]
  - Blood erythropoietin decreased [Unknown]
  - Muscular weakness [Unknown]
  - Neutropenia [Unknown]
  - Plasma cell myeloma [Unknown]

NARRATIVE: CASE EVENT DATE: 20220705
